FAERS Safety Report 9487331 (Version 3)
Quarter: 2013Q3

REPORT INFORMATION
  Report Type: Report from Study
  Country: CA (occurrence: CA)
  Receive Date: 20130829
  Receipt Date: 20130830
  Transmission Date: 20140515
  Serious: Yes (Other)
  Sender: FDA-Public Use
  Company Number: CA-ROCHE-1235154

PATIENT
  Age: 53 Year
  Sex: Female
  Weight: 77 kg

DRUGS (2)
  1. ACTEMRA [Suspect]
     Indication: RHEUMATOID ARTHRITIS
     Dosage: 4 MOST RECENT TOCILIZUMAB WAS ON 21/FEB/2013, 11/MAR/2013, 10/APR/2013 AND 07/MAY/2013 AT DOSE OF 59
     Route: 042
     Dates: start: 20110317
  2. METHOTREXATE [Concomitant]
     Route: 048

REACTIONS (2)
  - Infection [Recovered/Resolved]
  - Cellulitis [Unknown]
